FAERS Safety Report 13068565 (Version 1)
Quarter: 2016Q4

REPORT INFORMATION
  Report Type: Spontaneous
  Country: US (occurrence: US)
  Receive Date: 20161227
  Receipt Date: 20161227
  Transmission Date: 20170207
  Serious: Yes (Death, Hospitalization, Other)
  Sender: FDA-Public Use
  Company Number: None

PATIENT
  Age: 75 Year
  Sex: Female
  Weight: 60.75 kg

DRUGS (10)
  1. CELEBREX [Concomitant]
     Active Substance: CELECOXIB
  2. FORTEO [Suspect]
     Active Substance: TERIPARATIDE
     Indication: OSTEOPOROSIS
     Dosage: ?          OTHER STRENGTH:MCG;QUANTITY:28 INJECTION(S);?
     Route: 058
  3. PAIN PUMP [Concomitant]
     Active Substance: DEVICE
  4. FORTEO [Concomitant]
     Active Substance: TERIPARATIDE
  5. CARVADOPA-LEVADOPA [Concomitant]
  6. RESTASIS [Concomitant]
     Active Substance: CYCLOSPORINE
  7. ACYCLOVIR. [Concomitant]
     Active Substance: ACYCLOVIR
  8. BIOTIN [Concomitant]
     Active Substance: BIOTIN
  9. LUTEIN [Concomitant]
     Active Substance: LUTEIN
  10. VITAMIN B12 [Concomitant]
     Active Substance: CYANOCOBALAMIN

REACTIONS (3)
  - Malaise [None]
  - Acute leukaemia [None]
  - Fatigue [None]

NARRATIVE: CASE EVENT DATE: 20161207
